FAERS Safety Report 4268749-1 (Version None)
Quarter: 2004Q1

REPORT INFORMATION
  Report Type: 
  Country: None (occurrence: None)
  Receive Date: 20040112
  Receipt Date: 20040112
  Transmission Date: 20041129
  Serious: Yes (Hospitalization)
  Sender: FDA-Public Use
  Company Number: None

PATIENT
  Age: 40 Year
  Sex: Male
  Weight: 68.5 kg

DRUGS (9)
  1. SEVELAMER 800 MG [Suspect]
  2. ASPIRIN [Concomitant]
  3. AMLOPIDINE [Concomitant]
  4. ATENOLOL [Concomitant]
  5. CARVEDILOL [Concomitant]
  6. CLONIDINE [Concomitant]
  7. ESOMEPRAZOLE [Concomitant]
  8. HYDRALAZINE HCL [Concomitant]
  9. ZOLPIDEM TARTRATE [Concomitant]

REACTIONS (14)
  - ABDOMINAL DISTENSION [None]
  - BLOOD PHOSPHORUS INCREASED [None]
  - DIARRHOEA [None]
  - DRUG INEFFECTIVE [None]
  - FREQUENT BOWEL MOVEMENTS [None]
  - GASTROINTESTINAL DISORDER [None]
  - INFLAMMATION [None]
  - MELAENA [None]
  - MUSCLE CRAMP [None]
  - NAUSEA [None]
  - RENAL ATROPHY [None]
  - SPLENOMEGALY [None]
  - VOMITING [None]
  - WEIGHT DECREASED [None]
